FAERS Safety Report 10503175 (Version 1)
Quarter: 2014Q4

REPORT INFORMATION
  Report Type: Spontaneous
  Country: US (occurrence: US)
  Receive Date: 20141007
  Receipt Date: 20141007
  Transmission Date: 20150528
  Serious: No
  Sender: FDA-Public Use
  Company Number: US-GILEAD-2014-0117406

PATIENT
  Age: 58 Year
  Sex: Female

DRUGS (1)
  1. SOVALDI [Suspect]
     Active Substance: SOFOSBUVIR
     Indication: HEPATITIS C
     Dosage: 400 MG, QD
     Route: 048
     Dates: start: 20140929

REACTIONS (4)
  - Depression [Unknown]
  - Flank pain [Unknown]
  - Anxiety [Unknown]
  - Pruritus [Unknown]

NARRATIVE: CASE EVENT DATE: 20141001
